FAERS Safety Report 9399460 (Version 1)
Quarter: 2013Q3

REPORT INFORMATION
  Report Type: Spontaneous
  Country: FR (occurrence: FR)
  Receive Date: 20130715
  Receipt Date: 20130715
  Transmission Date: 20140515
  Serious: Yes (Hospitalization)
  Sender: FDA-Public Use
  Company Number: FR-JNJFOC-20130705449

PATIENT
  Age: 87 Year
  Sex: Male

DRUGS (7)
  1. XARELTO [Suspect]
     Indication: CEREBROVASCULAR ACCIDENT PROPHYLAXIS
     Route: 048
     Dates: start: 20130116, end: 20130531
  2. XARELTO [Suspect]
     Indication: SICK SINUS SYNDROME
     Route: 048
     Dates: start: 20130116, end: 20130531
  3. TRIATEC [Suspect]
     Indication: HYPERTENSION
     Route: 048
     Dates: start: 201303, end: 20130603
  4. LASILIX [Concomitant]
     Indication: CARDIAC FAILURE
     Route: 048
     Dates: end: 20130528
  5. LASILIX [Concomitant]
     Indication: CARDIAC FAILURE
     Route: 048
     Dates: start: 20130531
  6. FORLAX [Concomitant]
     Indication: CONSTIPATION
     Route: 048
  7. AMLODIPINE [Concomitant]
     Indication: HYPERTENSION
     Route: 048

REACTIONS (1)
  - Thrombocytopenia [Recovered/Resolved]
